FAERS Safety Report 8433997-3 (Version None)
Quarter: 2012Q2

REPORT INFORMATION
  Report Type: 
  Country: None (occurrence: None)
  Receive Date: 20120613
  Receipt Date: 20120222
  Transmission Date: 20120825
  Serious: Yes (Hospitalization)
  Sender: FDA-Public Use
  Company Number: US-ROCHE-789378

PATIENT
  Sex: Female
  Weight: 74.4 kg

DRUGS (27)
  1. VEMURAFENIB [Suspect]
     Route: 048
     Dates: start: 20111021, end: 20111023
  2. CODEINE SULFATE [Concomitant]
     Indication: DIARRHOEA
     Dosage: TAKEN FOR AE:DIARRHOEA
     Route: 048
  3. NORVASC [Concomitant]
     Indication: ESSENTIAL HYPERTENSION
     Route: 048
     Dates: start: 20080501, end: 20110714
  4. VEMURAFENIB [Suspect]
     Route: 048
     Dates: start: 20110827, end: 20110918
  5. VEMURAFENIB [Suspect]
     Route: 048
     Dates: start: 20110920, end: 20110922
  6. VEMURAFENIB [Suspect]
     Route: 048
     Dates: start: 20111117, end: 20111219
  7. NADOLOL [Concomitant]
     Indication: ESSENTIAL HYPERTENSION
     Route: 048
  8. BIFIDOBACTERIUM [Concomitant]
     Indication: PROPHYLAXIS
     Dosage: REPORT AS ALIGN OR
     Route: 048
     Dates: start: 20090604, end: 20111218
  9. VEMURAFENIB [Suspect]
     Route: 048
     Dates: start: 20111014, end: 20111020
  10. ATIVAN [Concomitant]
     Indication: INSOMNIA
     Route: 048
     Dates: start: 20080425, end: 20110922
  11. CHOLECALCIFEROL [Concomitant]
  12. SYNTHROID [Concomitant]
     Indication: THYROIDECTOMY
     Route: 048
     Dates: start: 20100909
  13. VEMURAFENIB [Suspect]
     Indication: THYROID CANCER
     Dosage: LAST DOSE PRIOR TO SAE 07 JULY 2011.
     Route: 048
     Dates: start: 20110630, end: 20110707
  14. VEMURAFENIB [Suspect]
     Route: 048
     Dates: start: 20110819, end: 20110826
  15. VEMURAFENIB [Suspect]
     Route: 048
     Dates: start: 20110929, end: 20111013
  16. TRAMADOL HCL [Concomitant]
  17. VEMURAFENIB [Suspect]
     Dosage: DOSE MODIFIED DUE TO AE, THEN INTERRUPTED AGAIN (REASON NOT SPECIFIED)
     Route: 048
     Dates: start: 20110728, end: 20110810
  18. VEMURAFENIB [Suspect]
     Route: 048
     Dates: start: 20111024, end: 20111112
  19. VEMURAFENIB [Suspect]
     Route: 048
     Dates: start: 20111221, end: 20120101
  20. CITRACAL + D [Concomitant]
     Indication: PROPHYLAXIS
     Route: 048
     Dates: start: 20110623, end: 20111020
  21. CICLESONIDE [Concomitant]
  22. IBUPROFEN [Concomitant]
  23. VEMURAFENIB [Suspect]
     Dosage: DOSE MODIFIED DUE TO AN ADVERSE EVENT AND THEN INTERRUPTED ON 22 JUL 2011 (REASON NOT SPECIFIED)
     Route: 048
     Dates: start: 20110714, end: 20110722
  24. VEMURAFENIB [Suspect]
     Route: 048
  25. ASPIRIN [Concomitant]
     Indication: PROPHYLAXIS
     Route: 048
  26. MULTI-VITAMIN [Concomitant]
     Indication: PROPHYLAXIS
     Route: 048
     Dates: start: 20080425
  27. PROBIOTIC SUPPLEMENT NOS [Concomitant]
     Indication: PROPHYLAXIS
     Dates: start: 20111201

REACTIONS (7)
  - ASPARTATE AMINOTRANSFERASE INCREASED [None]
  - HYPOTENSION [None]
  - RASH MACULAR [None]
  - FATIGUE [None]
  - RASH ERYTHEMATOUS [None]
  - BLOOD URIC ACID INCREASED [None]
  - ALANINE AMINOTRANSFERASE INCREASED [None]
